FAERS Safety Report 6939466-1 (Version None)
Quarter: 2010Q3

REPORT INFORMATION
  Report Type: 
  Country: None (occurrence: None)
  Receive Date: 20100824
  Receipt Date: 20100816
  Transmission Date: 20110219
  Serious: Yes (Hospitalization)
  Sender: FDA-Public Use
  Company Number: US-GILEAD-2010-0030778

PATIENT
  Sex: Female
  Weight: 73.094 kg

DRUGS (10)
  1. LETAIRIS [Suspect]
     Indication: PULMONARY ARTERIAL HYPERTENSION
     Route: 048
     Dates: start: 20100713
  2. SINGULAIR [Concomitant]
  3. LASIX [Concomitant]
  4. XOPENEX [Concomitant]
  5. FLOVENT [Concomitant]
  6. VERAMYST [Concomitant]
  7. SOTALOL HCL [Concomitant]
  8. CARDIZEM [Concomitant]
  9. NIACIN [Concomitant]
  10. MOTRIN [Concomitant]

REACTIONS (2)
  - CHEST PAIN [None]
  - DYSPNOEA [None]
